FAERS Safety Report 20896871 (Version 1)
Quarter: 2022Q2

REPORT INFORMATION
  Report Type: Spontaneous
  Country: US (occurrence: US)
  Receive Date: 20220531
  Receipt Date: 20220531
  Transmission Date: 20220720
  Serious: No
  Sender: FDA-Public Use
  Company Number: US-PFIZER INC-202200755562

PATIENT
  Age: 71 Year
  Sex: Female
  Weight: 70.31 kg

DRUGS (1)
  1. PAXLOVID [Suspect]
     Active Substance: NIRMATRELVIR\RITONAVIR
     Indication: COVID-19 treatment
     Dosage: 3 DF, 2X/DAY (300-100MG)
     Route: 048
     Dates: start: 20220523

REACTIONS (3)
  - Dysgeusia [Not Recovered/Not Resolved]
  - Condition aggravated [Unknown]
  - Ageusia [Unknown]

NARRATIVE: CASE EVENT DATE: 20220501
